FAERS Safety Report 10418017 (Version 1)
Quarter: 2014Q2

REPORT INFORMATION
  Report Type: Spontaneous
  Country: US (occurrence: None)
  Receive Date: 20140613
  Receipt Date: 20140613
  Transmission Date: 20141212
  Serious: Yes (Other)
  Sender: FDA-Public Use
  Company Number: PHEH2013US022246

PATIENT
  Age: 50 Year
  Sex: Male

DRUGS (2)
  1. EXFORGE HCT [Suspect]
     Indication: HYPERTENSION
     Dosage: 1 DF (VALS 320 MG / AMLO 10 MG / HYDR 25 MG)?
     Route: 048
  2. TRIBENZOR [Suspect]

REACTIONS (4)
  - Blood pressure increased [None]
  - Head discomfort [None]
  - Dizziness [None]
  - Headache [None]
